FAERS Safety Report 22646524 (Version 1)
Quarter: 2023Q2

REPORT INFORMATION
  Report Type: Report from Study
  Country: AU (occurrence: AU)
  Receive Date: 20230627
  Receipt Date: 20230627
  Transmission Date: 20230722
  Serious: Yes (Hospitalization)
  Sender: FDA-Public Use
  Company Number: AU-BRISTOL-MYERS SQUIBB COMPANY-2023-090135

PATIENT
  Age: 86 Year
  Sex: Male
  Weight: 83 kg

DRUGS (28)
  1. PACLITAXEL [Suspect]
     Active Substance: PACLITAXEL
     Indication: Ductal adenocarcinoma of pancreas
     Dosage: ONCE ON DAY 1, 8 AND 15
     Route: 042
     Dates: start: 20230327, end: 20230327
  2. PACLITAXEL [Suspect]
     Active Substance: PACLITAXEL
     Dosage: ONCE ON DAY 1,8,15
     Route: 042
     Dates: start: 20230404, end: 20230404
  3. PACLITAXEL [Suspect]
     Active Substance: PACLITAXEL
     Dosage: ONCE ON DAY 1, 8 AND 15
     Route: 042
     Dates: start: 20230411, end: 20230411
  4. PACLITAXEL [Suspect]
     Active Substance: PACLITAXEL
     Dosage: ONCE ON DAY 1,8, 15
     Route: 042
     Dates: start: 20230427, end: 20230427
  5. PACLITAXEL [Suspect]
     Active Substance: PACLITAXEL
     Dosage: ONCE ON DAY 1,8,15
     Route: 042
     Dates: start: 20230503, end: 20230503
  6. PACLITAXEL [Suspect]
     Active Substance: PACLITAXEL
     Dosage: ONCE ON DAY 1,8,15
     Route: 042
     Dates: start: 20230510, end: 20230510
  7. PACLITAXEL [Suspect]
     Active Substance: PACLITAXEL
     Dosage: ONCE ON DAY 1,8,15
     Route: 042
     Dates: start: 20230523, end: 20230523
  8. PACLITAXEL [Suspect]
     Active Substance: PACLITAXEL
     Dosage: ONCE ON DAY 1,8,15
     Route: 042
     Dates: start: 20230530, end: 20230530
  9. PACLITAXEL [Suspect]
     Active Substance: PACLITAXEL
     Dosage: ONCE ON DAY 1,8,15
     Route: 042
     Dates: start: 20230606, end: 20230606
  10. GEMCITABINE [Suspect]
     Active Substance: GEMCITABINE
     Indication: Ductal adenocarcinoma of pancreas
     Dosage: ONCE ON DAY 1,8,15
     Route: 042
     Dates: start: 20230404, end: 20230404
  11. GEMCITABINE [Suspect]
     Active Substance: GEMCITABINE
     Dosage: ONCE ON DAY 1,8,15
     Route: 042
     Dates: start: 20230411, end: 20230411
  12. GEMCITABINE [Suspect]
     Active Substance: GEMCITABINE
     Dosage: ONCE ON DAY 1,8,15
     Route: 042
     Dates: start: 20230427, end: 20230427
  13. GEMCITABINE [Suspect]
     Active Substance: GEMCITABINE
     Dosage: ONCE ON DAY 1,8,15
     Route: 042
     Dates: start: 20230503, end: 20230503
  14. GEMCITABINE [Suspect]
     Active Substance: GEMCITABINE
     Dosage: ONCE ON DAY 1,8,15
     Route: 042
     Dates: start: 20230510, end: 20230510
  15. GEMCITABINE [Suspect]
     Active Substance: GEMCITABINE
     Dosage: ONCE ON DAY 1,8,15
     Route: 042
     Dates: start: 20230523, end: 20230523
  16. GEMCITABINE [Suspect]
     Active Substance: GEMCITABINE
     Dosage: ONCE ON DAY 1,8,15
     Route: 042
     Dates: start: 20230530, end: 20230530
  17. GEMCITABINE [Suspect]
     Active Substance: GEMCITABINE
     Dosage: ONCE ON DAY 1,8,15
     Route: 042
     Dates: start: 20230606, end: 20230606
  18. GEMCITABINE [Suspect]
     Active Substance: GEMCITABINE
     Dosage: ONCE ON DAY 1,8,15
     Route: 042
     Dates: start: 20230327, end: 20230327
  19. CALTRATE VITAMIN D DAILY [Concomitant]
     Indication: Osteoarthritis
     Route: 048
     Dates: start: 2021
  20. DOCUSATE SODIUM [Concomitant]
     Active Substance: DOCUSATE SODIUM
     Indication: Diverticulitis
     Dosage: AS REQUIRED
     Route: 048
     Dates: start: 20230602
  21. DEXAMETHASONE [Concomitant]
     Active Substance: DEXAMETHASONE
     Indication: Prophylaxis of nausea and vomiting
     Dosage: AS REQUIRED
     Route: 042
     Dates: start: 20230411
  22. DOXYCYCLINE [Concomitant]
     Active Substance: DOXYCYCLINE
     Indication: Product used for unknown indication
     Route: 048
     Dates: start: 20230512, end: 20230513
  23. LAGEVRIO [Concomitant]
     Active Substance: MOLNUPIRAVIR
     Indication: Product used for unknown indication
     Route: 048
     Dates: start: 20230513, end: 20230518
  24. MOVICOL [Concomitant]
     Active Substance: POLYETHYLENE GLYCOL 3350\POTASSIUM CHLORIDE\SODIUM BICARBONATE\SODIUM CHLORIDE
     Indication: Product used for unknown indication
     Dosage: 1 OTHER SATCHET AS REQUIRED
     Route: 048
     Dates: start: 20230602
  25. MOVICOL [Concomitant]
     Active Substance: POLYETHYLENE GLYCOL 3350\POTASSIUM CHLORIDE\SODIUM BICARBONATE\SODIUM CHLORIDE
     Indication: Diverticulitis
     Dosage: 8 OTHER SATCHET STAT
     Route: 048
     Dates: start: 20230518, end: 20230518
  26. PALONOSETRON [Concomitant]
     Active Substance: PALONOSETRON
     Indication: Prophylaxis of nausea and vomiting
     Route: 042
     Dates: start: 20230327
  27. RABEPRAZOLE [Concomitant]
     Active Substance: RABEPRAZOLE
     Indication: Reflux gastritis
     Route: 048
     Dates: start: 2016
  28. INNER HEALTH IBS SUPPORT [Concomitant]
     Indication: Prophylaxis
     Route: 048
     Dates: start: 2015

REACTIONS (2)
  - Anaemia [Recovered/Resolved]
  - Presyncope [Not Recovered/Not Resolved]

NARRATIVE: CASE EVENT DATE: 20230609
